FAERS Safety Report 8371529-9 (Version None)
Quarter: 2012Q2

REPORT INFORMATION
  Report Type: 
  Country: None (occurrence: None)
  Receive Date: 20120518
  Receipt Date: 20120419
  Transmission Date: 20120825
  Serious: Yes (Life-Threatening, Hospitalization, Disabling, Other)
  Sender: FDA-Public Use
  Company Number: IT-ASTRAZENECA-2012SE05578

PATIENT
  Age: 24555 Day
  Sex: Female

DRUGS (7)
  1. RAMIPRIL [Concomitant]
  2. LANSOPRAZOLO (LANSOPRAZOLE) [Concomitant]
  3. METOPROLOLO (METORPROLOL) [Concomitant]
  4. ROSUVASTATIN [Suspect]
     Indication: DYSLIPIDAEMIA
     Route: 048
     Dates: start: 20080101, end: 20111203
  5. ASPIRIN [Concomitant]
  6. ZYPREXA [Suspect]
     Indication: SCHIZOPHRENIA
     Route: 048
     Dates: start: 19970101, end: 20111203
  7. NITRIGLICERINA (NITROGLYCERIN) [Concomitant]
     Route: 062

REACTIONS (5)
  - HAEMATEMESIS [None]
  - GASTROOESOPHAGEAL REFLUX DISEASE [None]
  - FALL [None]
  - INCONTINENCE [None]
  - RHABDOMYOLYSIS [None]
